FAERS Safety Report 8987054 (Version 1)
Quarter: 2012Q4

REPORT INFORMATION
  Report Type: Spontaneous
  Country: US (occurrence: None)
  Receive Date: 20121217
  Receipt Date: 20121217
  Transmission Date: 20130627
  Serious: Yes (Other)
  Sender: FDA-Public Use
  Company Number: 2012PL000213

PATIENT
  Age: 68 Year
  Sex: Female
  Weight: 77.11 kg

DRUGS (8)
  1. LOTRONEX [Suspect]
     Indication: DIARRHEA
     Route: 048
     Dates: start: 20120604, end: 20121206
  2. LOTRONEX [Suspect]
     Indication: IRRITABLE BOWEL SYNDROME
     Route: 048
     Dates: start: 20120604, end: 20121206
  3. ASA [Concomitant]
  4. SIMVASTATIN [Concomitant]
  5. CHLORDIAZEPOXIDE [Concomitant]
  6. CALCIUM [Concomitant]
  7. LATANOPROST [Concomitant]
  8. LEVOBUNOLOL [Concomitant]

REACTIONS (2)
  - Colitis ischaemic [None]
  - Diverticulum [None]
